FAERS Safety Report 19099210 (Version 1)
Quarter: 2021Q2

REPORT INFORMATION
  Report Type: Spontaneous
  Country: US (occurrence: US)
  Receive Date: 20210406
  Receipt Date: 20210406
  Transmission Date: 20210717
  Serious: Yes (Other)
  Sender: FDA-Public Use
  Company Number: US-PRINSTON PHARMACEUTICAL INC.-2021PRN00123

PATIENT
  Age: 19 Year
  Sex: Male

DRUGS (3)
  1. CLOPIDOGREL [Suspect]
     Active Substance: CLOPIDOGREL BISULFATE
     Dosage: 75 MG, 1X/DAY
     Route: 065
  2. MILRINONE [Concomitant]
     Active Substance: MILRINONE
     Indication: VASOSPASM
     Route: 042
  3. CLOPIDOGREL [Suspect]
     Active Substance: CLOPIDOGREL BISULFATE
     Dosage: 150 MG LOADING DOSE
     Route: 065

REACTIONS (6)
  - Pulmonary oedema [Recovered/Resolved]
  - Somnolence [Recovered/Resolved]
  - Syncope [Recovered/Resolved]
  - Leukocytosis [Recovered/Resolved]
  - Acute respiratory distress syndrome [Recovered/Resolved]
  - Hypotension [Recovered/Resolved]
